FAERS Safety Report 15386910 (Version 3)
Quarter: 2019Q2

REPORT INFORMATION
  Report Type: Spontaneous
  Country: US (occurrence: US)
  Receive Date: 20180914
  Receipt Date: 20190612
  Transmission Date: 20190711
  Serious: Yes (Other)
  Sender: FDA-Public Use
  Company Number: US-ASTRAZENECA-2018SF15338

PATIENT
  Age: 24304 Day
  Sex: Female
  Weight: 78.9 kg

DRUGS (35)
  1. NEXIUM [Suspect]
     Active Substance: ESOMEPRAZOLE MAGNESIUM
     Indication: GASTROOESOPHAGEAL REFLUX DISEASE
     Route: 048
     Dates: start: 200710, end: 2016
  2. NEXIUM [Suspect]
     Active Substance: ESOMEPRAZOLE MAGNESIUM
     Indication: GASTROOESOPHAGEAL REFLUX DISEASE
     Dosage: GENERIC
     Route: 065
     Dates: start: 201501, end: 201701
  3. HYDROCODONE [Concomitant]
     Active Substance: HYDROCODONE
  4. FLUOXETINE [Concomitant]
     Active Substance: FLUOXETINE HYDROCHLORIDE
  5. NYSTATIN. [Concomitant]
     Active Substance: NYSTATIN
  6. ALBUTEROL. [Concomitant]
     Active Substance: ALBUTEROL
  7. FLUTICASONE. [Concomitant]
     Active Substance: FLUTICASONE
  8. HYDROCODONE [Concomitant]
     Active Substance: HYDROCODONE
  9. COREG [Concomitant]
     Active Substance: CARVEDILOL
  10. NEXIUM [Suspect]
     Active Substance: ESOMEPRAZOLE MAGNESIUM
     Indication: GASTROOESOPHAGEAL REFLUX DISEASE
     Dosage: GENERIC
     Route: 065
     Dates: start: 201501, end: 201701
  11. HYDROCODONE [Concomitant]
     Active Substance: HYDROCODONE
  12. LISINOPRIL. [Concomitant]
     Active Substance: LISINOPRIL
  13. METFORMIN [Concomitant]
     Active Substance: METFORMIN HYDROCHLORIDE
  14. IBUPROFEN. [Concomitant]
     Active Substance: IBUPROFEN
  15. ZITHROMAX [Concomitant]
     Active Substance: AZITHROMYCIN DIHYDRATE
  16. LANTUS [Concomitant]
     Active Substance: INSULIN GLARGINE
  17. NEXIUM [Suspect]
     Active Substance: ESOMEPRAZOLE MAGNESIUM
     Indication: GASTROOESOPHAGEAL REFLUX DISEASE
     Route: 048
     Dates: start: 200710, end: 200801
  18. NEXIUM [Suspect]
     Active Substance: ESOMEPRAZOLE MAGNESIUM
     Indication: GASTROOESOPHAGEAL REFLUX DISEASE
     Route: 048
     Dates: start: 200811, end: 201501
  19. MIRABEGRON [Concomitant]
     Active Substance: MIRABEGRON
  20. GLIPIZIDE. [Concomitant]
     Active Substance: GLIPIZIDE
  21. METOPROLOL. [Concomitant]
     Active Substance: METOPROLOL
  22. GLIPIZIDE. [Concomitant]
     Active Substance: GLIPIZIDE
  23. RANEXA [Concomitant]
     Active Substance: RANOLAZINE
  24. PANTOPRAZOLE [Suspect]
     Active Substance: PANTOPRAZOLE
     Indication: GASTROOESOPHAGEAL REFLUX DISEASE
     Route: 065
     Dates: start: 200804, end: 200807
  25. GLIPIZIDE. [Concomitant]
     Active Substance: GLIPIZIDE
     Indication: DIABETES MELLITUS
  26. LISINOPRIL. [Concomitant]
     Active Substance: LISINOPRIL
  27. FLUOXETINE [Concomitant]
     Active Substance: FLUOXETINE HYDROCHLORIDE
  28. GLIPIZIDE. [Concomitant]
     Active Substance: GLIPIZIDE
  29. ASPIRIN. [Concomitant]
     Active Substance: ASPIRIN
  30. MIRABEGRON [Concomitant]
     Active Substance: MIRABEGRON
  31. CRESTOR [Concomitant]
     Active Substance: ROSUVASTATIN CALCIUM
  32. FLUOXETINE [Concomitant]
     Active Substance: FLUOXETINE HYDROCHLORIDE
  33. NITROSTAT [Concomitant]
     Active Substance: NITROGLYCERIN
  34. CLOPIDOGREL [Concomitant]
     Active Substance: CLOPIDOGREL BISULFATE
  35. PIOGLITAZONE. [Concomitant]
     Active Substance: PIOGLITAZONE

REACTIONS (2)
  - Chronic kidney disease [Not Recovered/Not Resolved]
  - Renal failure [Unknown]

NARRATIVE: CASE EVENT DATE: 20140218
